FAERS Safety Report 4759117-4 (Version None)
Quarter: 2005Q3

REPORT INFORMATION
  Report Type: 
  Country: None (occurrence: None)
  Receive Date: 20050826
  Receipt Date: 20050815
  Transmission Date: 20060218
  Serious: Yes (Hospitalization)
  Sender: FDA-Public Use
  Company Number: HQWYE831610AUG05

PATIENT
  Age: 41 Year
  Sex: Male
  Weight: 63.56 kg

DRUGS (6)
  1. RAPAMUNE [Suspect]
     Indication: PROPHYLAXIS AGAINST TRANSPLANT REJECTION
     Dosage: 8 MG DAILY ALTERNATING WITH 9 MG DAILY,  ORAL
     Route: 048
     Dates: start: 20050418, end: 20050816
  2. MYCOPHENOLATE MOFETIL (MYCOPHENOLATE MOFETIL, ) [Suspect]
     Indication: PROPHYLAXIS AGAINST TRANSPLANT REJECTION
     Dosage: ORAL
     Route: 048
     Dates: start: 20050401
  3. PREDNISONE [Suspect]
     Indication: PROPHYLAXIS AGAINST TRANSPLANT REJECTION
     Dosage: SEE IMAGE
     Route: 048
     Dates: start: 20050401
  4. ZENAPAX [Concomitant]
  5. COUMADIN WARFARIN SODIUN) [Concomitant]
  6. ASPIRIN [Concomitant]

REACTIONS (3)
  - BK VIRUS INFECTION [None]
  - KIDNEY TRANSPLANT REJECTION [None]
  - NEPHROPATHY [None]
